FAERS Safety Report 7057295-8 (Version None)
Quarter: 2010Q4

REPORT INFORMATION
  Report Type: 
  Country: None (occurrence: None)
  Receive Date: 20101022
  Receipt Date: 20101019
  Transmission Date: 20110411
  Serious: Yes (Hospitalization)
  Sender: FDA-Public Use
  Company Number: DE-BRISTOL-MYERS SQUIBB COMPANY-15340789

PATIENT
  Age: 45 Year
  Sex: Female

DRUGS (1)
  1. ABILIFY [Suspect]
     Dosage: INCREASED TO 10MG AND DECREASED TO 5MG

REACTIONS (3)
  - IMPULSIVE BEHAVIOUR [None]
  - PSYCHOTIC DISORDER [None]
  - RESTLESSNESS [None]
